FAERS Safety Report 14615528 (Version 3)
Quarter: 2018Q2

REPORT INFORMATION
  Report Type: Spontaneous
  Country: US (occurrence: US)
  Receive Date: 20180308
  Receipt Date: 20180413
  Transmission Date: 20180711
  Serious: Yes (Other)
  Sender: FDA-Public Use
  Company Number: US-UCBSA-2018009666

PATIENT

DRUGS (1)
  1. XYZAL [Suspect]
     Active Substance: LEVOCETIRIZINE DIHYDROCHLORIDE
     Indication: PRODUCT USED FOR UNKNOWN INDICATION
     Dosage: UNK
     Route: 048

REACTIONS (25)
  - Contusion [Unknown]
  - Neck pain [Unknown]
  - Nasal congestion [Unknown]
  - Productive cough [Unknown]
  - Hypertension [Unknown]
  - Upper-airway cough syndrome [Unknown]
  - Temperature intolerance [Unknown]
  - Dyspnoea [Unknown]
  - Palpitations [Recovered/Resolved]
  - Anxiety [Unknown]
  - Seasonal allergy [Unknown]
  - Back pain [Unknown]
  - Depression [Unknown]
  - Constipation [Unknown]
  - Extrasystoles [Unknown]
  - Urine output decreased [Unknown]
  - Rhinorrhoea [Unknown]
  - Hypersensitivity [Unknown]
  - Insomnia [Unknown]
  - Deafness [Unknown]
  - Pollakiuria [Unknown]
  - Gait disturbance [Unknown]
  - Tremor [Unknown]
  - Arthralgia [Unknown]
  - Joint swelling [Unknown]
